FAERS Safety Report 4879589-4 (Version None)
Quarter: 2006Q1

REPORT INFORMATION
  Report Type: 
  Country: None (occurrence: None)
  Receive Date: 20060113
  Receipt Date: 20041228
  Transmission Date: 20060701
  Serious: No
  Sender: FDA-Public Use
  Company Number: US-BRISTOL-MYERS SQUIBB COMPANY-12808374

PATIENT
  Age: 50 Year
  Sex: Female
  Weight: 83 kg

DRUGS (3)
  1. CISPLATIN [Suspect]
     Indication: VULVAL CANCER
     Route: 051
     Dates: start: 20041228, end: 20041228
  2. KYTRIL [Concomitant]
     Indication: PREMEDICATION
  3. DEXAMETHASONE TAB [Concomitant]
     Indication: PREMEDICATION

REACTIONS (1)
  - EXTRAVASATION [None]
